FAERS Safety Report 6242440-4 (Version None)
Quarter: 2009Q2

REPORT INFORMATION
  Report Type: 
  Country: None (occurrence: None)
  Receive Date: 20090622
  Receipt Date: 20090622
  Transmission Date: 20091009
  Serious: Yes (Disabling)
  Sender: FDA-Public Use
  Company Number: None

PATIENT
  Age: 58 Year
  Sex: Male
  Weight: 81.6475 kg

DRUGS (1)
  1. MIRAPEX [Suspect]
     Indication: RESTLESS LEGS SYNDROME
     Dosage: ANY

REACTIONS (5)
  - ABNORMAL BEHAVIOUR [None]
  - FAMILY STRESS [None]
  - GAMBLING [None]
  - PAIN [None]
  - SUDDEN ONSET OF SLEEP [None]
